FAERS Safety Report 20727167 (Version 1)
Quarter: 2022Q2

REPORT INFORMATION
  Report Type: Spontaneous
  Country: US (occurrence: US)
  Receive Date: 20220419
  Receipt Date: 20220419
  Transmission Date: 20220721
  Serious: Yes (Other)
  Sender: FDA-Public Use
  Company Number: US-LUNDBECK-DKLU3046987

PATIENT
  Age: 4 Year
  Sex: Female

DRUGS (3)
  1. SABRIL [Suspect]
     Active Substance: VIGABATRIN
     Indication: Epilepsy
     Route: 048
     Dates: start: 201802
  2. SABRIL [Suspect]
     Active Substance: VIGABATRIN
     Indication: Infantile spasms
     Route: 048
     Dates: start: 202203
  3. SABRIL [Suspect]
     Active Substance: VIGABATRIN
     Indication: Congenital central nervous system anomaly
     Route: 048
     Dates: start: 202203

REACTIONS (1)
  - Seizure [Not Recovered/Not Resolved]
